FAERS Safety Report 25661376 (Version 1)
Quarter: 2025Q3

REPORT INFORMATION
  Report Type: Report from Study
  Country: CA (occurrence: CA)
  Receive Date: 20250808
  Receipt Date: 20250808
  Transmission Date: 20251021
  Serious: Yes (Death, Other)
  Sender: MYLAN
  Company Number: CA-MYLANLABS-2025M1066876

PATIENT
  Age: 85 Year
  Sex: Male

DRUGS (1)
  1. CLOZAPINE [Suspect]
     Active Substance: CLOZAPINE
     Indication: Product used for unknown indication

REACTIONS (4)
  - Death [Fatal]
  - Haematemesis [Unknown]
  - Heart rate increased [Unknown]
  - Hypotension [Unknown]

NARRATIVE: CASE EVENT DATE: 20250805
